FAERS Safety Report 6545502-7 (Version None)
Quarter: 2010Q1

REPORT INFORMATION
  Report Type: 
  Country: None (occurrence: None)
  Receive Date: 20100121
  Receipt Date: 20100113
  Transmission Date: 20100710
  Serious: Yes (Other)
  Sender: FDA-Public Use
  Company Number: BR-PFIZER INC-2010005223

PATIENT
  Age: 72 Year
  Sex: Male
  Weight: 90 kg

DRUGS (6)
  1. VIAGRA [Suspect]
     Indication: ERECTILE DYSFUNCTION
     Dosage: UNK
     Route: 048
     Dates: start: 20000101
  2. MAREVAN ^NYCOMED^ [Concomitant]
     Dosage: UNK
  3. GLIMEPIRIDE [Concomitant]
     Dosage: UNK
  4. INSULIN [Concomitant]
     Dosage: UNK
  5. MODURETIC 5-50 [Concomitant]
     Dosage: UNK
  6. SOMALGIN [Concomitant]
     Dosage: UNK

REACTIONS (3)
  - HIP ARTHROPLASTY [None]
  - PROSTHESIS IMPLANTATION [None]
  - PROTHROMBIN TIME ABNORMAL [None]
